FAERS Safety Report 5793865-2 (Version None)
Quarter: 2008Q2

REPORT INFORMATION
  Report Type: 
  Country: None (occurrence: None)
  Receive Date: 20080627
  Receipt Date: 20080611
  Transmission Date: 20081010
  Serious: No
  Sender: FDA-Public Use
  Company Number: US-BOEHRINGER INGELHEIM GMBH, GERMANY-2008-BP-07689BP

PATIENT
  Age: 35 Year
  Sex: Male

DRUGS (2)
  1. FLOMAX [Suspect]
     Dates: end: 20080415
  2. BACTRIM DS [Suspect]
     Route: 048
     Dates: start: 20080407, end: 20080410

REACTIONS (1)
  - HEADACHE [None]
